FAERS Safety Report 5146660-1 (Version None)
Quarter: 2006Q4

REPORT INFORMATION
  Report Type: 
  Country: None (occurrence: None)
  Receive Date: 20061102
  Receipt Date: 20061019
  Transmission Date: 20070319
  Serious: Yes (Other)
  Sender: FDA-Public Use
  Company Number: 2006106402

PATIENT
  Age: 42 Year
  Sex: Male
  Weight: 41 kg

DRUGS (12)
  1. CEFAZOLIN SODIUM [Suspect]
     Indication: DRUG USE FOR UNKNOWN INDICATION
     Dosage: 1 GRAM, INTRAVENOUS; SEE IMAGE
     Route: 042
     Dates: start: 20060812, end: 20060824
  2. CEFAZOLIN SODIUM [Suspect]
     Indication: DRUG USE FOR UNKNOWN INDICATION
     Dosage: 1 GRAM, INTRAVENOUS; SEE IMAGE
     Route: 042
     Dates: start: 20060825, end: 20060827
  3. CLINDAMYCIN HCL [Concomitant]
  4. RIFANDIN (RIFAMPICIN) [Concomitant]
  5. BLOPRESS (CANDESARTAN CILEXETIL) [Concomitant]
  6. RABEPRAZOLE SODIUM [Concomitant]
  7. AMLODIPINE [Concomitant]
  8. UNASYN [Concomitant]
  9. ESPO (EPOETIN ALFA) [Concomitant]
  10. RECOMBINATE [Concomitant]
  11. VANCOMYCIN [Concomitant]
  12. SULFAMETHOXAZOLE + TRIMETHOPRIM [Concomitant]

REACTIONS (9)
  - BLOOD PRESSURE DECREASED [None]
  - CONVULSION [None]
  - DEPRESSED LEVEL OF CONSCIOUSNESS [None]
  - DRUG LEVEL INCREASED [None]
  - DYSARTHRIA [None]
  - DYSKINESIA [None]
  - HAEMODIALYSIS [None]
  - INFLAMMATION [None]
  - RENAL FAILURE [None]
